FAERS Safety Report 8598613-9 (Version None)
Quarter: 2012Q3

REPORT INFORMATION
  Report Type: 
  Country: None (occurrence: None)
  Receive Date: 20120816
  Receipt Date: 20120801
  Transmission Date: 20120928
  Serious: Yes (Other)
  Sender: FDA-Public Use
  Company Number: JP-ROCHE-1097622

PATIENT
  Age: 65 Year
  Sex: Male

DRUGS (8)
  1. FLUOROURACIL [Suspect]
     Dosage: DOSAGE IS UNCERTAIN.
     Route: 041
     Dates: start: 20100601, end: 20101201
  2. LEVOLEUCOVORIN CALCIUM [Suspect]
     Indication: COLON CANCER METASTATIC
     Dosage: DOSAGE IS UNCERTAIN.
     Route: 041
     Dates: start: 20100601, end: 20101201
  3. FLUOROURACIL [Suspect]
     Indication: COLON CANCER METASTATIC
     Dosage: DOSAGE IS UNCERTAIN.
     Route: 040
     Dates: start: 20100601, end: 20101201
  4. OXALIPLATIN [Suspect]
     Indication: COLON CANCER METASTATIC
     Dosage: DOSAGE IS UNCERTAIN.
     Route: 041
     Dates: start: 20100601, end: 20101201
  5. AVASTIN [Suspect]
     Indication: COLON CANCER METASTATIC
     Dosage: DOSAGE IS UNCERTAIN.
     Route: 041
     Dates: start: 20100601
  6. LEVOLEUCOVORIN CALCIUM [Suspect]
     Dosage: DOSAGE IS UNCERTAIN.
     Route: 041
  7. FLUOROURACIL [Suspect]
     Dosage: DOSAGE IS UNCERTAIN.
     Route: 040
  8. FLUOROURACIL [Suspect]
     Dosage: DOSAGE IS UNCERTAIN.
     Route: 041

REACTIONS (4)
  - HEPATIC ATROPHY [None]
  - OESOPHAGEAL VARICES HAEMORRHAGE [None]
  - SPLENOMEGALY [None]
  - NEUROPATHY PERIPHERAL [None]
